FAERS Safety Report 19229132 (Version 2)
Quarter: 2021Q4

REPORT INFORMATION
  Report Type: Other
  Country: US (occurrence: US)
  Receive Date: 20210507
  Receipt Date: 20211015
  Transmission Date: 20220303
  Serious: Yes (Hospitalization)
  Sender: FDA-Public Use
  Company Number: US-ROCHE-2822953

PATIENT
  Sex: Male
  Weight: 85.81 kg

DRUGS (10)
  1. OCREVUS [Suspect]
     Active Substance: OCRELIZUMAB
     Indication: Relapsing-remitting multiple sclerosis
     Dosage: DOT:12/AUG/2020 (600 MG), 23/FEB/2021 (600 MG) AND 30/AUG/2021 (300 MG)
     Route: 065
     Dates: start: 20200205
  2. OCREVUS [Suspect]
     Active Substance: OCRELIZUMAB
     Route: 065
     Dates: start: 2018
  3. VOLTAREN [Concomitant]
     Active Substance: DICLOFENAC SODIUM
  4. LEXAPRO [Concomitant]
     Active Substance: ESCITALOPRAM OXALATE
  5. ZESTRIL [Concomitant]
     Active Substance: LISINOPRIL
  6. METFORMIN [Concomitant]
     Active Substance: METFORMIN HYDROCHLORIDE
  7. PROVIGIL [Concomitant]
     Active Substance: MODAFINIL
  8. PROTONIX [Concomitant]
     Active Substance: PANTOPRAZOLE SODIUM
  9. LYRICA [Concomitant]
     Active Substance: PREGABALIN
  10. PFIZER-BIONTECH COVID-19 VACCINE [Concomitant]
     Active Substance: TOZINAMERAN
     Dates: start: 20210217

REACTIONS (3)
  - Pulmonary embolism [Unknown]
  - COVID-19 [Unknown]
  - Epistaxis [Unknown]
